FAERS Safety Report 4317951-9 (Version None)
Quarter: 2004Q1

REPORT INFORMATION
  Report Type: 
  Country: None (occurrence: None)
  Receive Date: 20040316
  Receipt Date: 20031120
  Transmission Date: 20041129
  Serious: Yes (Other)
  Sender: FDA-Public Use
  Company Number: JP-GLAXOSMITHKLINE-B0315925A

PATIENT
  Age: 53 Year
  Sex: Male

DRUGS (7)
  1. LAMIVUDINE [Suspect]
     Dosage: 100MG PER DAY
     Route: 048
     Dates: start: 20011120
  2. FUROSEMIDE [Concomitant]
     Dosage: 10MG PER DAY
     Dates: start: 19990924, end: 20020830
  3. SPIRONOLACTONE [Concomitant]
     Dosage: 25MG PER DAY
     Dates: start: 19990924, end: 20020830
  4. TEPRENONE [Concomitant]
     Dates: start: 19960625
  5. RANITIDINE HYDROCHLORIDE [Concomitant]
     Dates: start: 20010612
  6. AMINO ACID INJ [Concomitant]
     Dates: start: 20010209
  7. LACTITOL [Concomitant]
     Dates: start: 20010919

REACTIONS (1)
  - HEPATIC NEOPLASM MALIGNANT [None]
